FAERS Safety Report 17144689 (Version 1)
Quarter: 2019Q4

REPORT INFORMATION
  Report Type: Spontaneous
  Country: US (occurrence: US)
  Receive Date: 20191212
  Receipt Date: 20191212
  Transmission Date: 20200122
  Serious: No
  Sender: FDA-Public Use
  Company Number: US-NOVEN PHARMACEUTICALS, INC.-US2019000052

PATIENT

DRUGS (2)
  1. ESTRADIOL(GP) [Suspect]
     Active Substance: ESTRADIOL
     Indication: OFF LABEL USE
  2. ESTRADIOL(GP) [Suspect]
     Active Substance: ESTRADIOL
     Indication: HORMONE REPLACEMENT THERAPY
     Dosage: 0.075 MG, UNKNOWN
     Route: 062

REACTIONS (5)
  - Off label use [Not Recovered/Not Resolved]
  - Product quality issue [Unknown]
  - Headache [Not Recovered/Not Resolved]
  - Therapeutic product effect decreased [Unknown]
  - Hot flush [Not Recovered/Not Resolved]
